FAERS Safety Report 5296792-2 (Version None)
Quarter: 2007Q2

REPORT INFORMATION
  Report Type: 
  Country: None (occurrence: None)
  Receive Date: 20070413
  Receipt Date: 20070402
  Transmission Date: 20071010
  Serious: Yes (Other)
  Sender: FDA-Public Use
  Company Number: US-PFIZER INC-2007027357

PATIENT
  Sex: Female
  Weight: 66.7 kg

DRUGS (2)
  1. CHANTIX [Suspect]
     Indication: SMOKING CESSATION THERAPY
     Dosage: FREQ:EVERY DAY
  2. CYMBALTA [Concomitant]

REACTIONS (9)
  - ABNORMAL BEHAVIOUR [None]
  - DECREASED APPETITE [None]
  - DEPRESSION [None]
  - DRUG DEPENDENCE [None]
  - FATIGUE [None]
  - ILL-DEFINED DISORDER [None]
  - MOOD ALTERED [None]
  - NAUSEA [None]
  - WEIGHT DECREASED [None]
